FAERS Safety Report 12606347 (Version 1)
Quarter: 2016Q3

REPORT INFORMATION
  Report Type: Report from Study
  Country: US (occurrence: US)
  Receive Date: 20160729
  Receipt Date: 20160729
  Transmission Date: 20161109
  Serious: Yes (Life-Threatening, Other)
  Sender: FDA-Public Use
  Company Number: US-ROCHE-1172461

PATIENT
  Age: 64 Year
  Sex: Female
  Weight: 93.2 kg

DRUGS (9)
  1. VISMODEGIB [Suspect]
     Active Substance: VISMODEGIB
     Indication: SMALL CELL LUNG CANCER
     Dosage: ON DAYS 1-21
     Route: 048
     Dates: start: 20101123
  2. CISPLATIN. [Suspect]
     Active Substance: CISPLATIN
     Indication: SMALL CELL LUNG CANCER
     Dosage: TOTAL DOSE ADMINISTERED UP TO 23/NOV/2010: 144 MG
     Route: 042
     Dates: start: 20101123
  3. VISMODEGIB [Suspect]
     Active Substance: VISMODEGIB
     Dosage: ON DAYS 1-21
     Route: 048
     Dates: start: 20110104
  4. VISMODEGIB [Suspect]
     Active Substance: VISMODEGIB
     Dosage: ON DAYS 1-21
     Route: 048
     Dates: start: 20110308, end: 20110328
  5. VISMODEGIB [Suspect]
     Active Substance: VISMODEGIB
     Dosage: ON DAYS 1-21
     Route: 048
     Dates: start: 20101214
  6. VISMODEGIB [Suspect]
     Active Substance: VISMODEGIB
     Dosage: ON DAYS 1-21
     Route: 048
     Dates: start: 20110125
  7. ETOPOSIDE. [Suspect]
     Active Substance: ETOPOSIDE
     Indication: SMALL CELL LUNG CANCER
     Dosage: TOTAL DOSE ADMINISTERED UP TO 25/NOV/2010: 579 MG
     Route: 042
     Dates: start: 20101123
  8. VERAPAMIL [Concomitant]
     Active Substance: VERAPAMIL HYDROCHLORIDE
     Dosage: DOSE INCREASED TO 100MG TREATMENT FOR AE.
     Route: 065
  9. VISMODEGIB [Suspect]
     Active Substance: VISMODEGIB
     Dosage: ON DAYS 1-21
     Route: 048
     Dates: start: 20110215

REACTIONS (2)
  - White blood cell count decreased [Unknown]
  - Neutrophil count decreased [Recovered/Resolved]

NARRATIVE: CASE EVENT DATE: 20101207
